FAERS Safety Report 12339019 (Version 1)
Quarter: 2016Q2

REPORT INFORMATION
  Report Type: Spontaneous
  Country: US (occurrence: US)
  Receive Date: 20160505
  Receipt Date: 20160505
  Transmission Date: 20160815
  Serious: No
  Sender: FDA-Public Use
  Company Number: US-MISSION PHARMACAL COMPANY-1051525

PATIENT
  Age: 68 Year
  Sex: Female

DRUGS (2)
  1. THIOLA [Suspect]
     Active Substance: TIOPRONIN
     Indication: CYSTINOSIS
     Route: 065
     Dates: start: 20160404
  2. BENADRYL [Concomitant]
     Active Substance: DIPHENHYDRAMINE HYDROCHLORIDE
     Route: 065

REACTIONS (3)
  - Pruritus [Recovered/Resolved]
  - Petechiae [Recovered/Resolved with Sequelae]
  - Petechiae [Unknown]

NARRATIVE: CASE EVENT DATE: 20160418
